FAERS Safety Report 4619438-2 (Version None)
Quarter: 2005Q1

REPORT INFORMATION
  Report Type: 
  Country: None (occurrence: None)
  Receive Date: 20050324
  Receipt Date: 20050303
  Transmission Date: 20050727
  Serious: Yes (Hospitalization)
  Sender: FDA-Public Use
  Company Number: USA050392247

PATIENT
  Age: 49 Year
  Sex: Female

DRUGS (3)
  1. GEMZAR [Suspect]
     Indication: BREAST CANCER RECURRENT
     Dates: start: 20050101
  2. TAXOL [Concomitant]
  3. XELODA [Concomitant]

REACTIONS (2)
  - CONDITION AGGRAVATED [None]
  - PALMAR-PLANTAR ERYTHRODYSAESTHESIA SYNDROME [None]
